FAERS Safety Report 8095256-0 (Version None)
Quarter: 2012Q1

REPORT INFORMATION
  Report Type: 
  Country: None (occurrence: None)
  Receive Date: 20120129
  Receipt Date: 20111220
  Transmission Date: 20120608
  Serious: No
  Sender: FDA-Public Use
  Company Number: US-ABBOTT-11P-163-0884675-00

PATIENT
  Sex: Female
  Weight: 81.72 kg

DRUGS (12)
  1. SYNTHROID [Concomitant]
     Indication: HYPOTHYROIDISM
  2. MULTI-VITAMINS [Concomitant]
     Indication: VITAMIN SUPPLEMENTATION
  3. VITAMIN D [Concomitant]
     Indication: VITAMIN SUPPLEMENTATION
  4. METHOTREXATE [Concomitant]
     Indication: RHEUMATOID ARTHRITIS
     Dosage: FOUR PILLS ONCE WEEKLY
  5. UNKNOWN ALLERGY PILL [Concomitant]
     Indication: PRODUCT USED FOR UNKNOWN INDICATION
  6. ASCORBIC ACID [Concomitant]
     Indication: VITAMIN SUPPLEMENTATION
  7. ASPIRIN [Concomitant]
     Indication: PRODUCT USED FOR UNKNOWN INDICATION
  8. LISINOPRIL [Concomitant]
     Indication: HYPERTENSION
  9. HUMIRA [Suspect]
     Indication: RHEUMATOID ARTHRITIS
     Dates: start: 20030101, end: 20111101
  10. DORZOLAMIDE HYDROCHLORIDE AND TIMOLOL MALEATE [Concomitant]
     Indication: GLAUCOMA
     Route: 031
  11. HUMIRA [Suspect]
     Dates: start: 20111213
  12. PRAVASTATIN [Concomitant]
     Indication: BLOOD CHOLESTEROL INCREASED

REACTIONS (2)
  - NASOPHARYNGITIS [None]
  - COUGH [None]
